FAERS Safety Report 15536907 (Version 1)
Quarter: 2018Q4

REPORT INFORMATION
  Report Type: Spontaneous
  Country: CA (occurrence: CA)
  Receive Date: 20181022
  Receipt Date: 20181022
  Transmission Date: 20190205
  Serious: Yes (Hospitalization, Other)
  Sender: FDA-Public Use
  Company Number: CA-APOTEX-2018AP023071

PATIENT
  Age: 61 Year
  Sex: Female

DRUGS (2)
  1. MYCO[PHENOLATE [Suspect]
     Active Substance: MYCOPHENOLATE MOFETIL
     Indication: IMMUNE-MEDIATED NECROTISING MYOPATHY
     Dosage: 1 G, BID
     Route: 065
  2. IMMUNOGLOBULINS [Concomitant]
     Active Substance: IMMUNE GLOBULIN NOS
     Indication: IMMUNE-MEDIATED NECROTISING MYOPATHY
     Dosage: UNK, Q.M.T.
     Route: 042

REACTIONS (2)
  - Status epilepticus [Recovered/Resolved]
  - Encephalopathy [Unknown]
